FAERS Safety Report 8251096-0 (Version None)
Quarter: 2012Q2

REPORT INFORMATION
  Report Type: 
  Country: None (occurrence: None)
  Receive Date: 20120402
  Receipt Date: 20120321
  Transmission Date: 20120825
  Serious: Yes (Disabling)
  Sender: FDA-Public Use
  Company Number: CA-GILEAD-2012-0052949

PATIENT
  Age: 83 Year
  Sex: Female

DRUGS (11)
  1. ACTONEL [Concomitant]
     Dosage: UNK
  2. VENTOLIN HFA [Concomitant]
  3. L-THYROXINE                        /00068001/ [Concomitant]
     Dosage: .05MG TWICE PER DAY
  4. INFLUENZA VIRUS VACCINE POLYVALENT [Suspect]
     Indication: PROPHYLAXIS
     Route: 065
     Dates: start: 20110101, end: 20110101
  5. WARFARIN SODIUM [Concomitant]
     Dosage: UNK
  6. OXYGEN [Concomitant]
  7. SYMBICORT [Concomitant]
     Dosage: UNK DF, UNK
  8. METOPROLOL SUCCINATE [Concomitant]
     Dosage: UNK
  9. AMBRISENTAN [Suspect]
     Indication: PULMONARY HYPERTENSION
     Dosage: 5MG PER DAY
     Route: 048
     Dates: start: 20111025, end: 20111104
  10. LASIX [Concomitant]
     Dosage: 40MG IN THE MORNING
  11. SPIRIVA [Concomitant]
     Dosage: 18MCG PER DAY

REACTIONS (4)
  - INCREASED UPPER AIRWAY SECRETION [None]
  - DYSPNOEA [None]
  - OEDEMA PERIPHERAL [None]
  - PRODUCTIVE COUGH [None]
